FAERS Safety Report 17160196 (Version 1)
Quarter: 2019Q4

REPORT INFORMATION
  Report Type: Spontaneous
  Country: US (occurrence: US)
  Receive Date: 20191216
  Receipt Date: 20191216
  Transmission Date: 20200122
  Serious: No
  Sender: FDA-Public Use
  Company Number: US-ASTRAZENECA-2019SF66627

PATIENT
  Age: 21258 Day
  Sex: Female
  Weight: 93 kg

DRUGS (1)
  1. PULMICORT TURBUHALER [Suspect]
     Active Substance: BUDESONIDE
     Indication: ASTHMA
     Route: 055
     Dates: start: 20191018

REACTIONS (5)
  - Cough [Not Recovered/Not Resolved]
  - Product dose omission [Recovered/Resolved]
  - Device issue [Unknown]
  - Intentional product misuse [Recovered/Resolved]
  - Incorrect dose administered by product [Unknown]

NARRATIVE: CASE EVENT DATE: 20191018
